FAERS Safety Report 20077027 (Version 1)
Quarter: 2021Q4

REPORT INFORMATION
  Report Type: Report from Study
  Country: DE (occurrence: DE)
  Receive Date: 20211116
  Receipt Date: 20211116
  Transmission Date: 20220303
  Serious: Yes (Other)
  Sender: FDA-Public Use
  Company Number: DE-TEVA-2021-DE-1975343

PATIENT

DRUGS (3)
  1. DIGITOXIN [Suspect]
     Active Substance: DIGITOXIN
     Indication: Product used for unknown indication
     Route: 065
  2. OXYCODONE [Suspect]
     Active Substance: OXYCODONE
     Indication: Product used for unknown indication
     Dosage: HIGH DOSE
     Route: 065
  3. DULOXETINE [Suspect]
     Active Substance: DULOXETINE
     Indication: Product used for unknown indication
     Dosage: HIGH DOSE
     Route: 065

REACTIONS (5)
  - Hallucination [Unknown]
  - Confusional state [Unknown]
  - Dizziness [Unknown]
  - Somnolence [Unknown]
  - Toxicity to various agents [Unknown]
